FAERS Safety Report 4400632-0 (Version None)
Quarter: 2004Q3

REPORT INFORMATION
  Report Type: 
  Country: None (occurrence: None)
  Receive Date: 20040716
  Receipt Date: 20040716
  Transmission Date: 20050211
  Serious: Yes (Other)
  Sender: FDA-Public Use
  Company Number: None

PATIENT
  Sex: Female

DRUGS (1)
  1. PREDNISOLONE [Suspect]
     Indication: ANGLE CLOSURE GLAUCOMA
     Dosage: 1 DROP 4XS DAILY LEFT EYE

REACTIONS (2)
  - BEDRIDDEN [None]
  - FEELING ABNORMAL [None]
